FAERS Safety Report 9135131 (Version 1)
Quarter: 2013Q1

REPORT INFORMATION
  Report Type: Spontaneous
  Country: US (occurrence: US)
  Receive Date: 20130304
  Receipt Date: 20130304
  Transmission Date: 20140127
  Serious: Yes (Other)
  Sender: FDA-Public Use
  Company Number: US-SANOFI-AVENTIS-2013SA013213

PATIENT
  Age: 86 Year
  Sex: Male
  Weight: 60.4 kg

DRUGS (3)
  1. MULTAQ [Suspect]
     Indication: ATRIAL FIBRILLATION
     Route: 048
     Dates: start: 2011
  2. ATENOLOL [Concomitant]
     Dates: start: 1987
  3. ASPIRIN [Concomitant]

REACTIONS (4)
  - Atrial fibrillation [Unknown]
  - Heart rate increased [Unknown]
  - Nasopharyngitis [Unknown]
  - Rhinorrhoea [Unknown]
